FAERS Safety Report 8845980 (Version 3)
Quarter: 2013Q1

REPORT INFORMATION
  Report Type: Spontaneous
  Country: US (occurrence: US)
  Receive Date: 20121017
  Receipt Date: 20130305
  Transmission Date: 20140127
  Serious: Yes (Death, Hospitalization)
  Sender: FDA-Public Use
  Company Number: US-B.I. PHARMACEUTICALS,INC./RIDGEFIELD-2012-BP-25585BP

PATIENT
  Age: 83 Year
  Sex: Female

DRUGS (8)
  1. PRADAXA [Suspect]
     Indication: ATRIAL FIBRILLATION
     Dosage: 300 MG
     Route: 048
     Dates: end: 20110718
  2. PRADAXA [Suspect]
     Dosage: 450 MG
     Route: 048
     Dates: start: 20110718, end: 201110
  3. LORTAB [Concomitant]
  4. LACTULOSE [Concomitant]
  5. LASIX [Concomitant]
     Dosage: 60 MG
  6. NEXIUM [Concomitant]
  7. XANAX [Concomitant]
  8. HYDROCODONE [Concomitant]

REACTIONS (13)
  - Pneumonia [Fatal]
  - Respiratory distress [Fatal]
  - Upper gastrointestinal haemorrhage [Unknown]
  - Lower gastrointestinal haemorrhage [Unknown]
  - Haemoptysis [Unknown]
  - Coagulopathy [Unknown]
  - Haemorrhage [Unknown]
  - Anaemia [Unknown]
  - International normalised ratio increased [Unknown]
  - Renal haemorrhage [Unknown]
  - Epistaxis [Unknown]
  - Rectal haemorrhage [Unknown]
  - Respiratory failure [Unknown]
